FAERS Safety Report 4610732-8 (Version None)
Quarter: 2005Q2

REPORT INFORMATION
  Report Type: 
  Country: None (occurrence: None)
  Receive Date: 20050228
  Receipt Date: 20040722
  Transmission Date: 20051028
  Serious: Yes (Hospitalization)
  Sender: FDA-Public Use
  Company Number: 201880

PATIENT
  Age: 4 Year
  Sex: Male

DRUGS (1)
  1. NUTROPIN AQ [Suspect]
     Indication: BODY HEIGHT BELOW NORMAL
     Dosage: SUBCUTANEOUS
     Route: 058
     Dates: start: 20001201

REACTIONS (1)
  - ASEPTIC NECROSIS BONE [None]
